FAERS Safety Report 4431917-X (Version None)
Quarter: 2004Q3

REPORT INFORMATION
  Report Type: 
  Country: None (occurrence: None)
  Receive Date: 20040818
  Receipt Date: 20040730
  Transmission Date: 20050211
  Serious: Yes (Death, Other)
  Sender: FDA-Public Use
  Company Number: USA040874173

PATIENT
  Sex: Male

DRUGS (2)
  1. ZYPREXA [Suspect]
     Dates: start: 20040101
  2. SYMBYAX [Suspect]
     Dates: start: 20040101, end: 20040101

REACTIONS (2)
  - COMPLETED SUICIDE [None]
  - THERAPEUTIC RESPONSE DECREASED [None]
